FAERS Safety Report 15869718 (Version 1)
Quarter: 2019Q1

REPORT INFORMATION
  Report Type: Spontaneous
  Country: US (occurrence: US)
  Receive Date: 20190125
  Receipt Date: 20190125
  Transmission Date: 20190417
  Serious: No
  Sender: FDA-Public Use
  Company Number: US-TARO-2017TAR01116

PATIENT
  Age: 79 Year
  Sex: Female
  Weight: 58.05 kg

DRUGS (2)
  1. UNSPECIFIED ^REGULAR^ MEDICATIONS [Concomitant]
  2. CLOTRIMAZOLE VAGINAL CREAM USP 1% 7 DAY [Suspect]
     Active Substance: CLOTRIMAZOLE
     Indication: FUNGAL INFECTION
     Dosage: UNK UNK, 1X/DAY
     Route: 067
     Dates: start: 20171226, end: 20180102

REACTIONS (4)
  - Product quality issue [Recovered/Resolved]
  - Accidental underdose [Recovered/Resolved]
  - Product use issue [Recovered/Resolved]
  - Drug ineffective [Recovered/Resolved]

NARRATIVE: CASE EVENT DATE: 20171226
